FAERS Safety Report 9932415 (Version 4)
Quarter: 2014Q2

REPORT INFORMATION
  Report Type: Spontaneous
  Country: US (occurrence: US)
  Receive Date: 20140228
  Receipt Date: 20140420
  Transmission Date: 20141212
  Serious: Yes (Other)
  Sender: FDA-Public Use
  Company Number: US-009507513-1402USA013591

PATIENT
  Sex: Male

DRUGS (3)
  1. PROVENTIL [Suspect]
     Indication: BRONCHOSPASM
     Dosage: UNK
     Route: 055
     Dates: start: 20140218
  2. PROVENTIL [Suspect]
     Indication: THROAT TIGHTNESS
  3. AVELOX [Suspect]
     Indication: URINARY TRACT INFECTION
     Dosage: 400MG
     Route: 048
     Dates: start: 20140218

REACTIONS (5)
  - Pruritus [Recovering/Resolving]
  - Urticaria [Recovering/Resolving]
  - Hypotension [Recovering/Resolving]
  - Dizziness [Recovering/Resolving]
  - Asthenia [Recovering/Resolving]
